FAERS Safety Report 13997285 (Version 2)
Quarter: 2017Q4

REPORT INFORMATION
  Report Type: Report from Study
  Country: MX (occurrence: MX)
  Receive Date: 20170921
  Receipt Date: 20171013
  Transmission Date: 20180321
  Serious: No
  Sender: FDA-Public Use
  Company Number: PHHY2017MX138711

PATIENT
  Age: 73 Year
  Sex: Male
  Weight: 96 kg

DRUGS (4)
  1. CO-DIOVAN [Suspect]
     Active Substance: HYDROCHLOROTHIAZIDE\VALSARTAN
     Indication: HYPERTENSION
     Dosage: 1 DF (HYDROCHLOROTHIAZIDE 12.5,VALSARTAN 160 MG), QD
     Route: 048
     Dates: start: 2015
  2. CO-DIOVAN [Suspect]
     Active Substance: HYDROCHLOROTHIAZIDE\VALSARTAN
     Dosage: 0.3 DF (HYDROCHLOROTHIAZIDE 12.5,VALSARTAN 160 MG), QD
     Route: 048
     Dates: start: 2017
  3. CO-DIOVAN [Suspect]
     Active Substance: HYDROCHLOROTHIAZIDE\VALSARTAN
     Dosage: 0.5 (HYDROCHLOROTHIAZIDE 12.5,VALSARTAN 160 MG), QD
     Route: 048
     Dates: start: 201701
  4. MADOPAR [Concomitant]
     Active Substance: BENSERAZIDE HYDROCHLORIDE\LEVODOPA
     Indication: PRODUCT USED FOR UNKNOWN INDICATION
     Dosage: (100 MG LEVODOPA AND 25MG BENSERAZIDE HYDROCHLORIDE)
     Route: 065

REACTIONS (3)
  - Drug prescribing error [Not Recovered/Not Resolved]
  - Wrong technique in product usage process [Not Recovered/Not Resolved]
  - Blood pressure decreased [Recovered/Resolved]

NARRATIVE: CASE EVENT DATE: 201701
